FAERS Safety Report 7464365-9 (Version None)
Quarter: 2011Q2

REPORT INFORMATION
  Report Type: 
  Country: None (occurrence: None)
  Receive Date: 20110509
  Receipt Date: 20110502
  Transmission Date: 20111010
  Serious: Yes (Hospitalization)
  Sender: FDA-Public Use
  Company Number: BR-MEDIMMUNE-MEDI-0013163

PATIENT
  Sex: Male
  Weight: 7.95 kg

DRUGS (4)
  1. SYNAGIS [Suspect]
     Route: 030
     Dates: start: 20100630, end: 20100827
  2. DOMPERIDONE [Suspect]
     Dosage: ACCORDING TO PT'S WEIGHT
     Route: 048
     Dates: start: 20110101
  3. OMEPRAZOLE [Concomitant]
     Route: 048
     Dates: start: 20101201
  4. HYDROXYZINE [Suspect]
     Route: 048
     Dates: start: 20110101

REACTIONS (7)
  - PYREXIA [None]
  - CRYING [None]
  - BRONCHITIS [None]
  - IRRITABILITY [None]
  - SOMNOLENCE [None]
  - ASPHYXIA [None]
  - INFLUENZA [None]
